FAERS Safety Report 5729533-2 (Version None)
Quarter: 2008Q2

REPORT INFORMATION
  Report Type: 
  Country: None (occurrence: None)
  Receive Date: 20080501
  Receipt Date: 20080421
  Transmission Date: 20081010
  Serious: Yes (Death, Hospitalization, Other)
  Sender: FDA-Public Use
  Company Number: 2008US001143

PATIENT
  Age: 45 Year
  Sex: Male

DRUGS (21)
  1. PROGRAF [Suspect]
     Indication: LIVER TRANSPLANT
  2. AMBISOME [Suspect]
     Indication: MENINGITIS CRYPTOCOCCAL
  3. FUROSEMIDE [Concomitant]
  4. PROPRANOLOL [Concomitant]
  5. HYDROXYZINE [Concomitant]
  6. LACTOSE (LACTOSE) [Concomitant]
  7. URSODIOL (URSODEOXYCHOLIC ACID) [Concomitant]
  8. AZATHIOPRINE [Concomitant]
  9. METHYLPREDNISOLONE [Concomitant]
  10. SULFAMETHOXAZOLE AND TRIMETHOPRIM [Concomitant]
  11. CLOTRIMAZOLE [Concomitant]
  12. VANCOMYCIN [Concomitant]
  13. AZTREONAM (AZTREONAM) [Concomitant]
  14. CYCLOSPORINE [Concomitant]
  15. MYCOPHENOLATE MOFETIL [Concomitant]
  16. PREDNISONE TAB [Concomitant]
  17. MULTIVITAMIN [Concomitant]
  18. THIAMINE [Concomitant]
  19. FOLATE SODIUM (FOLATE SODIUM) [Concomitant]
  20. ITRACONAZOLE [Concomitant]
  21. VALGANCICLOVIR HCL [Concomitant]

REACTIONS (17)
  - ASCITES [None]
  - BACTERAEMIA [None]
  - CLOSTRIDIAL INFECTION [None]
  - CONFUSIONAL STATE [None]
  - DIARRHOEA [None]
  - DISSEMINATED CRYPTOCOCCOSIS [None]
  - DYSARTHRIA [None]
  - FAECAL INCONTINENCE [None]
  - GAIT DISTURBANCE [None]
  - HAEMODIALYSIS [None]
  - HYDROCEPHALUS [None]
  - HYPONATRAEMIA [None]
  - MENINGITIS CRYPTOCOCCAL [None]
  - PLEURAL EFFUSION [None]
  - RENAL FAILURE [None]
  - SEPSIS [None]
  - URINARY INCONTINENCE [None]
